FAERS Safety Report 5478365-1 (Version None)
Quarter: 2007Q4

REPORT INFORMATION
  Report Type: 
  Country: None (occurrence: None)
  Receive Date: 20071005
  Receipt Date: 20071003
  Transmission Date: 20080405
  Serious: Yes (Death)
  Sender: FDA-Public Use
  Company Number: B0481623A

PATIENT
  Age: 65 Year
  Sex: Male

DRUGS (2)
  1. PAXIL [Suspect]
     Indication: DEPRESSION
     Route: 048
     Dates: start: 20021001
  2. GASMOTIN [Concomitant]
     Indication: PROPHYLAXIS
     Dosage: 1TAB THREE TIMES PER DAY
     Route: 048
     Dates: start: 20021001, end: 20021011

REACTIONS (1)
  - COMPLETED SUICIDE [None]
